FAERS Safety Report 13835876 (Version 3)
Quarter: 2017Q3

REPORT INFORMATION
  Report Type: Spontaneous
  Country: US (occurrence: US)
  Receive Date: 20170804
  Receipt Date: 20170828
  Transmission Date: 20171127
  Serious: Yes (Other)
  Sender: FDA-Public Use
  Company Number: US-PFIZER INC-2017326624

PATIENT
  Age: 35 Year
  Sex: Female

DRUGS (4)
  1. CENTRUM MULTIGUMMIES WOMEN [Suspect]
     Active Substance: MINERALS\VITAMINS
     Dosage: UNK
  2. CENTRUM MULTIGUMMIES WOMEN [Suspect]
     Active Substance: MINERALS\VITAMINS
     Dosage: UNK
  3. CENTRUM MULTIGUMMIES WOMEN [Suspect]
     Active Substance: MINERALS\VITAMINS
     Indication: VITAMIN SUPPLEMENTATION
     Dosage: 2 DF, UNK
     Route: 048
  4. CHAPSTICK CLASSIC ORIGINAL [Suspect]
     Active Substance: PETROLATUM
     Dosage: UNK

REACTIONS (4)
  - Malaise [Unknown]
  - Poor quality drug administered [Unknown]
  - Hypersensitivity [Unknown]
  - Product quality issue [Unknown]
